FAERS Safety Report 9169493 (Version 1)
Quarter: 2013Q1

REPORT INFORMATION
  Report Type: Spontaneous
  Country: US (occurrence: US)
  Receive Date: 20130318
  Receipt Date: 20130318
  Transmission Date: 20140127
  Serious: No
  Sender: FDA-Public Use
  Company Number: US-BAUSCH-2012BL003110

PATIENT
  Sex: Female

DRUGS (2)
  1. CROMOLYN SODIUM OPHTHALMIC SOLUTION USP 4% [Suspect]
     Indication: EYE PRURITUS
     Route: 047
     Dates: end: 201112
  2. CROMOLYN SODIUM OPHTHALMIC SOLUTION USP 4% [Suspect]
     Indication: OFF LABEL USE

REACTIONS (4)
  - Eye irritation [Recovered/Resolved]
  - Eye pruritus [Recovered/Resolved]
  - Eyelids pruritus [Recovered/Resolved]
  - Instillation site pain [Recovered/Resolved]
